FAERS Safety Report 8486315-9 (Version None)
Quarter: 2012Q3

REPORT INFORMATION
  Report Type: 
  Country: None (occurrence: None)
  Receive Date: 20120703
  Receipt Date: 20120622
  Transmission Date: 20120928
  Serious: Yes (Hospitalization)
  Sender: FDA-Public Use
  Company Number: US-GLAXOSMITHKLINE-A0890918A

PATIENT
  Age: 58 Year
  Sex: Male
  Weight: 90.9 kg

DRUGS (6)
  1. CARTIA XT [Concomitant]
  2. AVANDIA [Suspect]
     Indication: DIABETES MELLITUS
     Dosage: 4MG PER DAY
     Route: 048
     Dates: start: 20000401, end: 20071201
  3. ZOCOR [Concomitant]
  4. INDOCIN [Concomitant]
  5. INDAPAMIDE [Concomitant]
  6. LISINOPRIL [Concomitant]

REACTIONS (9)
  - CAROTID ARTERY STENOSIS [None]
  - CARDIO-RESPIRATORY DISTRESS [None]
  - MYOCARDIAL INFARCTION [None]
  - CARDIOVASCULAR DISORDER [None]
  - CARDIAC FAILURE CONGESTIVE [None]
  - ARTERIOSCLEROSIS CORONARY ARTERY [None]
  - CEREBROVASCULAR ACCIDENT [None]
  - RENAL FAILURE CHRONIC [None]
  - RENAL FAILURE [None]
